FAERS Safety Report 5989992-7 (Version None)
Quarter: 2008Q4

REPORT INFORMATION
  Report Type: 
  Country: None (occurrence: None)
  Receive Date: 20081211
  Receipt Date: 20081210
  Transmission Date: 20090506
  Serious: Yes (Other)
  Sender: FDA-Public Use
  Company Number: DE-SP-2008-03952

PATIENT

DRUGS (1)
  1. BCG  THERAPEUTICS [Suspect]
     Dosage: NOT REPORTED
     Route: 065

REACTIONS (1)
  - BOVINE TUBERCULOSIS [None]
